FAERS Safety Report 19975114 (Version 1)
Quarter: 2021Q4

REPORT INFORMATION
  Report Type: Report from Study
  Country: US (occurrence: US)
  Receive Date: 20211020
  Receipt Date: 20211020
  Transmission Date: 20220303
  Serious: Yes (Hospitalization, Other)
  Sender: FDA-Public Use
  Company Number: 2021A772442

PATIENT
  Sex: Female
  Weight: 50.8 kg

DRUGS (6)
  1. BRILINTA [Suspect]
     Active Substance: TICAGRELOR
     Indication: Myocardial infarction
     Route: 048
     Dates: start: 2013
  2. BRILINTA [Suspect]
     Active Substance: TICAGRELOR
     Indication: Vascular graft
     Route: 048
     Dates: start: 2013
  3. BRILINTA [Suspect]
     Active Substance: TICAGRELOR
     Indication: Stent placement
     Route: 048
     Dates: start: 2013
  4. BRILINTA [Suspect]
     Active Substance: TICAGRELOR
     Indication: Dysstasia
     Route: 048
     Dates: start: 2013
  5. MACROBID [Concomitant]
     Active Substance: NITROFURANTOIN\NITROFURANTOIN MONOHYDRATE
  6. ASPIRIN [Concomitant]
     Active Substance: ASPIRIN

REACTIONS (11)
  - Urinary tract infection [Recovered/Resolved]
  - Multiple system atrophy [Not Recovered/Not Resolved]
  - Skin mass [Not Recovered/Not Resolved]
  - Contusion [Not Recovered/Not Resolved]
  - Erythema [Not Recovered/Not Resolved]
  - Pain [Not Recovered/Not Resolved]
  - Asthenia [Unknown]
  - Gait disturbance [Unknown]
  - Chronic kidney disease [Unknown]
  - Nausea [Unknown]
  - Vomiting [Unknown]
